FAERS Safety Report 4436382-4 (Version None)
Quarter: 2004Q3

REPORT INFORMATION
  Report Type: 
  Country: None (occurrence: None)
  Receive Date: 20040830
  Receipt Date: 20040421
  Transmission Date: 20050211
  Serious: No
  Sender: FDA-Public Use
  Company Number: US-BRISTOL-MYERS SQUIBB COMPANY-12566717

PATIENT
  Age: 10 Year
  Sex: Female
  Weight: 59 kg

DRUGS (2)
  1. ABILIFY [Suspect]
     Indication: DISTURBANCE IN ATTENTION
     Dosage: INITIATED AT 2.5 MG/DAY; 5MG JUN-03, 3.5MG 25-MAY-04, 5MG 03-JUN-04
     Route: 048
     Dates: start: 20030526
  2. OMEGA 3 FISH OIL [Concomitant]

REACTIONS (9)
  - DIZZINESS [None]
  - DRUG INEFFECTIVE [None]
  - EYE ROLLING [None]
  - FATIGUE [None]
  - FEELING ABNORMAL [None]
  - MOOD SWINGS [None]
  - NAUSEA [None]
  - SOMNOLENCE [None]
  - WEIGHT INCREASED [None]
